FAERS Safety Report 14476805 (Version 3)
Quarter: 2018Q2

REPORT INFORMATION
  Report Type: Spontaneous
  Country: US (occurrence: US)
  Receive Date: 20180201
  Receipt Date: 20180619
  Transmission Date: 20180711
  Serious: Yes (Death, Other)
  Sender: FDA-Public Use
  Company Number: US-PFIZER INC-2018040585

PATIENT
  Age: 25 Year
  Sex: Female

DRUGS (1)
  1. HYDROMORPHONE HYDROCHLORIDE. [Suspect]
     Active Substance: HYDROMORPHONE HYDROCHLORIDE
     Dosage: UNK
     Route: 042

REACTIONS (5)
  - Foreign body embolism [Fatal]
  - Pulmonary embolism [Fatal]
  - Drug abuse [Fatal]
  - Drug dependence [Unknown]
  - Hypersplenism [Fatal]
